FAERS Safety Report 19755473 (Version 1)
Quarter: 2021Q3

REPORT INFORMATION
  Report Type: Spontaneous
  Country: CH (occurrence: CH)
  Receive Date: 20210827
  Receipt Date: 20210827
  Transmission Date: 20211014
  Serious: Yes (Hospitalization)
  Sender: FDA-Public Use
  Company Number: CH-OTSUKA-2021_029250

PATIENT
  Sex: Female

DRUGS (4)
  1. PRETUVAL [Interacting]
     Active Substance: ACETAMINOPHEN\DEXTROMETHORPHAN HYDROBROMIDE\PSEUDOEPHEDRINE HYDROCHLORIDE
     Indication: PRODUCT USED FOR UNKNOWN INDICATION
     Dosage: UNK
     Route: 065
  2. REXULTI [Interacting]
     Active Substance: BREXPIPRAZOLE
     Indication: DELUSIONAL DISORDER, UNSPECIFIED TYPE
  3. REXULTI [Suspect]
     Active Substance: BREXPIPRAZOLE
     Indication: SCHIZOPHRENIA
     Dosage: 3 MG
     Route: 065
  4. REXULTI [Interacting]
     Active Substance: BREXPIPRAZOLE
     Indication: SCHIZOTYPAL PERSONALITY DISORDER

REACTIONS (4)
  - Aphasia [Unknown]
  - Drug interaction [Unknown]
  - General physical health deterioration [Unknown]
  - Lip swelling [Unknown]
